FAERS Safety Report 18149914 (Version 1)
Quarter: 2020Q3

REPORT INFORMATION
  Report Type: Spontaneous
  Country: US (occurrence: US)
  Receive Date: 20200813
  Receipt Date: 20200813
  Transmission Date: 20201103
  Serious: No
  Sender: FDA-Public Use
  Company Number: None

PATIENT
  Age: 47 Year
  Sex: Female
  Weight: 79.38 kg

DRUGS (3)
  1. MONSELS SOLUTION [Suspect]
     Active Substance: FERRIC SUBSULFATE
  2. LOVOXYL [Concomitant]
  3. METAL EEC BRUSH [Suspect]
     Active Substance: DEVICE

REACTIONS (6)
  - Restlessness [None]
  - Application site pain [None]
  - Chest pain [None]
  - Pelvic pain [None]
  - Tachycardia [None]
  - Vulvovaginal pain [None]

NARRATIVE: CASE EVENT DATE: 20200812
